FAERS Safety Report 8332151-3 (Version None)
Quarter: 2012Q2

REPORT INFORMATION
  Report Type: 
  Country: None (occurrence: None)
  Receive Date: 20120503
  Receipt Date: 20120426
  Transmission Date: 20120825
  Serious: Yes (Hospitalization)
  Sender: FDA-Public Use
  Company Number: DE-AMGEN-DEUSP2012026521

PATIENT
  Sex: Female

DRUGS (19)
  1. ACYCLOVIR [Concomitant]
     Dosage: 400 MG, 4 TIMES/WK
     Route: 048
     Dates: start: 20120308
  2. SIMVASTATIN [Concomitant]
     Dosage: 20 MG, QD
     Route: 048
  3. LEVOTHYROXINE SODIUM [Concomitant]
     Indication: HYPOTHYROIDISM
     Dosage: 125 MUG, QD
     Route: 048
  4. LYRICA [Concomitant]
     Indication: PAIN
     Dosage: 50 MG, QD
     Route: 048
  5. DIOVAN [Concomitant]
     Indication: HYPERTENSION
     Dosage: 80 MG, QD
     Route: 048
  6. GRANISETRON HYDROCHLORIDE [Concomitant]
     Dosage: 1 MG, Q2WK
     Route: 042
     Dates: start: 20120307
  7. NEULASTA [Suspect]
     Indication: MALIGNANT LYMPHOID NEOPLASM
     Dosage: 6 MG, Q2WK
     Route: 058
     Dates: start: 20120309
  8. VINCRISTINE [Suspect]
     Indication: MALIGNANT LYMPHOID NEOPLASM
     Dosage: 2 MG, Q2WK
     Route: 042
     Dates: start: 20120307
  9. RITUXIMAB [Suspect]
     Indication: MALIGNANT LYMPHOID NEOPLASM
     Dosage: 660 MG, Q2WK
     Route: 042
     Dates: start: 20120306
  10. URALYT                             /01779901/ [Concomitant]
     Dosage: 3 DF, Q2WK
     Route: 048
     Dates: start: 20120307
  11. EMEND [Concomitant]
     Dosage: 205 MG, Q2WK
     Route: 042
     Dates: start: 20120321
  12. CYMBALTA [Concomitant]
     Indication: DEPRESSION
     Dosage: 60 MG, QD
  13. HYDROCHLOROTHIAZIDE [Concomitant]
     Indication: HYPERTENSION
     Dosage: 12.5 MG, QD
     Route: 048
  14. CYCLOPHOSPHAMIDE [Suspect]
     Indication: MALIGNANT LYMPHOID NEOPLASM
     Dosage: 1320 MG, Q2WK
     Route: 042
     Dates: start: 20120307
  15. DOXORUBICIN HCL [Suspect]
     Indication: MALIGNANT LYMPHOID NEOPLASM
     Dosage: 88 MG, Q2WK
     Route: 042
     Dates: start: 20120307
  16. PREDNISONE [Suspect]
     Indication: MALIGNANT LYMPHOID NEOPLASM
     Dosage: 100 MG, UNK
     Route: 048
     Dates: start: 20120306
  17. MESNA [Concomitant]
     Dosage: 900 MG, Q2WK
     Route: 048
     Dates: start: 20120307
  18. OLMESARTAN MEDOXOMIL AND HYDROCHLOROTHIZIDE [Concomitant]
     Dosage: 20 MG, QD
     Route: 048
  19. COTRIM [Concomitant]
     Dosage: 960 MG, 2 TIMES/WK
     Route: 048
     Dates: start: 20120310

REACTIONS (1)
  - HYPERGLYCAEMIA [None]
